FAERS Safety Report 4596141-9 (Version None)
Quarter: 2005Q1

REPORT INFORMATION
  Report Type: 
  Country: None (occurrence: None)
  Receive Date: 20050302
  Receipt Date: 20050126
  Transmission Date: 20050727
  Serious: Yes (Hospitalization)
  Sender: FDA-Public Use
  Company Number: JP-ROCHE-394296

PATIENT
  Age: 68 Year
  Sex: Female

DRUGS (9)
  1. TAMIFLU [Suspect]
     Route: 048
     Dates: start: 20050111, end: 20050111
  2. TAMIFLU [Suspect]
     Route: 048
     Dates: start: 20050106, end: 20050107
  3. TAMIFLU [Suspect]
     Route: 048
     Dates: start: 20050109, end: 20050109
  4. TAMIFLU [Suspect]
     Route: 048
     Dates: start: 20050110, end: 20050110
  5. TS-1 CHEMOTHERAPY [Suspect]
     Indication: GASTRIC CANCER
     Route: 048
     Dates: start: 20041125
  6. ACETAMINOPHEN [Concomitant]
     Dosage: 0.5G TAKEN
     Route: 048
     Dates: start: 20050109, end: 20050111
  7. LANDEL [Concomitant]
     Route: 048
     Dates: start: 20000607
  8. LACTEC [Concomitant]
     Route: 041
     Dates: start: 20050111, end: 20050111
  9. PRIMPERAN TAB [Concomitant]
     Route: 042
     Dates: start: 20050111, end: 20050111

REACTIONS (5)
  - ABNORMAL BEHAVIOUR [None]
  - BLOOD PRESSURE DECREASED [None]
  - CONVULSION [None]
  - DEPRESSED LEVEL OF CONSCIOUSNESS [None]
  - SPEECH DISORDER [None]
